FAERS Safety Report 5813756-8 (Version None)
Quarter: 2008Q3

REPORT INFORMATION
  Report Type: 
  Country: None (occurrence: None)
  Receive Date: 20080717
  Receipt Date: 20080709
  Transmission Date: 20090109
  Serious: Yes (Hospitalization)
  Sender: FDA-Public Use
  Company Number: PHHY2008JP13732

PATIENT

DRUGS (1)
  1. COMTAN [Suspect]
     Indication: DRUG EFFECT DECREASED
     Dosage: 100 MG/DAY
     Route: 048
     Dates: start: 20080707

REACTIONS (2)
  - GAIT DISTURBANCE [None]
  - IMMOBILE [None]
